FAERS Safety Report 9586143 (Version 1)
Quarter: 2013Q4

REPORT INFORMATION
  Report Type: Report from Study
  Country: LB (occurrence: LB)
  Receive Date: 20131003
  Receipt Date: 20131003
  Transmission Date: 20140711
  Serious: Yes (Death)
  Sender: FDA-Public Use
  Company Number: LB-SA-2013SA095434

PATIENT
  Age: 70 Year
  Sex: Male

DRUGS (7)
  1. LANTUS SOLOSTAR [Suspect]
     Indication: DIABETES MELLITUS
     Dosage: DOSE:20 UNIT(S)
     Route: 058
  2. METFORMIN [Concomitant]
     Indication: DIABETES MELLITUS
     Route: 048
  3. DIAMICRON [Concomitant]
     Indication: DIABETES MELLITUS
     Route: 048
  4. NOOTROPIL [Concomitant]
     Route: 048
  5. DIUREX [Concomitant]
     Route: 048
  6. TRITACE [Concomitant]
     Indication: HYPERTENSION
     Route: 048
  7. ASPICOT [Concomitant]
     Route: 048

REACTIONS (1)
  - Prostate cancer metastatic [Fatal]
